FAERS Safety Report 8819862 (Version 1)
Quarter: 2012Q4

REPORT INFORMATION
  Report Type: 
  Country: US (occurrence: US)
  Receive Date: 20121001
  Receipt Date: 20121001
  Transmission Date: 20130627
  Serious: No
  Sender: FDA-Public Use
  Company Number: US-ASTRAZENECA-2004UW12759

PATIENT
  Age: 63 Year
  Sex: Female
  Weight: 58.5 kg

DRUGS (22)
  1. ATENOLOL [Suspect]
     Route: 048
  2. NEXIUM [Suspect]
     Indication: GASTROOESOPHAGEAL REFLUX DISEASE
     Route: 048
  3. NEXIUM [Suspect]
     Indication: GASTROOESOPHAGEAL REFLUX DISEASE
     Route: 048
  4. TAMOXIFEN [Concomitant]
  5. BELLAMINE S [Concomitant]
  6. LORAZEPAM [Concomitant]
  7. WELLBUTRIN XL [Concomitant]
  8. DOCUSATE SODIUM [Concomitant]
  9. CLONIDINE [Concomitant]
  10. PREMARIN [Concomitant]
  11. LEVSIN/SL [Concomitant]
  12. MIRALAX [Concomitant]
  13. LIPITOR [Concomitant]
  14. CLARITIN D [Concomitant]
  15. LASIX [Concomitant]
  16. CELEBREX [Concomitant]
  17. AMITIZA [Concomitant]
  18. ZANTAC [Concomitant]
  19. DULCOLAX [Concomitant]
     Indication: ABNORMAL FAECES
  20. ANTIVERT [Concomitant]
  21. TYLENOL [Concomitant]
  22. CENTRUM SILVER [Concomitant]

REACTIONS (9)
  - Flatulence [Unknown]
  - Abdominal pain [Unknown]
  - Iron deficiency anaemia [Unknown]
  - Abdominal distension [Unknown]
  - Dizziness [Unknown]
  - Nausea [Unknown]
  - Abdominal pain upper [Unknown]
  - Constipation [Unknown]
  - Inappropriate schedule of drug administration [Unknown]
